FAERS Safety Report 10934902 (Version 1)
Quarter: 2015Q1

REPORT INFORMATION
  Report Type: Spontaneous
  Country: ES (occurrence: ES)
  Receive Date: 20150320
  Receipt Date: 20150320
  Transmission Date: 20150721
  Serious: Yes (Other)
  Sender: FDA-Public Use
  Company Number: ES-PERRIGO-15ES002762

PATIENT
  Age: 8 Year

DRUGS (2)
  1. IBUPROFEN 20 MG/ML CHILD GRAPE 660 [Suspect]
     Active Substance: IBUPROFEN
     Indication: DRUG PROVOCATION TEST
     Dosage: UNKNOWN, UNKNOWN
     Route: 048
  2. IBUPROFEN 20 MG/ML CHILD GRAPE 660 [Suspect]
     Active Substance: IBUPROFEN
     Indication: PRODUCT USED FOR UNKNOWN INDICATION
     Dosage: UNKNOWN, UNKNOWN
     Route: 065

REACTIONS (1)
  - Angioedema [Recovered/Resolved]
